FAERS Safety Report 17093325 (Version 1)
Quarter: 2019Q4

REPORT INFORMATION
  Report Type: Report from Study
  Country: IT (occurrence: IT)
  Receive Date: 20191129
  Receipt Date: 20191129
  Transmission Date: 20200122
  Serious: Yes (Other)
  Sender: FDA-Public Use
  Company Number: IT-TEVA-2019-IT-1142514

PATIENT
  Age: 71 Year
  Sex: Female
  Weight: 55 kg

DRUGS (3)
  1. CARBOPLATIN. [Suspect]
     Active Substance: CARBOPLATIN
     Indication: OVARIAN NEOPLASM
     Dosage: 450 MG
     Route: 042
     Dates: start: 20190822
  2. PACLITAXEL. [Suspect]
     Active Substance: PACLITAXEL
     Indication: OVARIAN NEOPLASM
     Dosage: 240 MG
     Route: 042
     Dates: start: 20190822
  3. NEULASTA 6 MG SOLUTION FOR INJECTION [Concomitant]
     Dates: start: 20190913, end: 20190913

REACTIONS (6)
  - Nausea [Recovering/Resolving]
  - Ascites [Recovering/Resolving]
  - Constipation [Recovering/Resolving]
  - Vomiting [Recovering/Resolving]
  - Abdominal pain [Recovering/Resolving]
  - Faecaloma [Recovering/Resolving]

NARRATIVE: CASE EVENT DATE: 20190913
